FAERS Safety Report 18228741 (Version 1)
Quarter: 2020Q3

REPORT INFORMATION
  Report Type: Spontaneous
  Country: SK (occurrence: SK)
  Receive Date: 20200903
  Receipt Date: 20200903
  Transmission Date: 20201103
  Serious: Yes (Other)
  Sender: FDA-Public Use
  Company Number: SK-MYLANLABS-2020M1075162

PATIENT
  Age: 43 Year
  Sex: Male

DRUGS (11)
  1. SEMGLEE [Suspect]
     Active Substance: INSULIN GLARGINE
     Indication: TYPE 1 DIABETES MELLITUS
  2. INSULIN HUMAN [Suspect]
     Active Substance: INSULIN HUMAN
     Indication: LATENT AUTOIMMUNE DIABETES IN ADULTS
     Dosage: UNK
     Route: 058
     Dates: start: 201008, end: 201101
  3. INSULIN GLULISINE [Suspect]
     Active Substance: INSULIN GLULISINE
     Indication: LATENT AUTOIMMUNE DIABETES IN ADULTS
  4. INSULIN LISPRO [Suspect]
     Active Substance: INSULIN LISPRO
     Indication: LATENT AUTOIMMUNE DIABETES IN ADULTS
     Dosage: UNK
     Route: 058
     Dates: start: 201503
  5. THIOCTACID                         /00213801/ [Concomitant]
     Active Substance: .ALPHA.-LIPOIC ACID
     Indication: DIABETIC NEUROPATHY
     Dosage: 600 MG, QD (0?0?1)
  6. INSULIN DETEMIR [Suspect]
     Active Substance: INSULIN DETEMIR
     Indication: TYPE 1 DIABETES MELLITUS
     Dosage: 12 INTERNATIONAL UNIT
     Route: 058
     Dates: start: 201705, end: 201904
  7. INSULIN LISPRO [Suspect]
     Active Substance: INSULIN LISPRO
     Indication: TYPE 1 DIABETES MELLITUS
     Dosage: 8 IU, TID (8?8?8?IU)
     Route: 058
     Dates: start: 201705
  8. SEMGLEE [Suspect]
     Active Substance: INSULIN GLARGINE
     Indication: LATENT AUTOIMMUNE DIABETES IN ADULTS
     Dosage: 14 INTERNATIONAL UNIT
     Route: 058
     Dates: start: 201904
  9. INSULIN GLULISINE [Suspect]
     Active Substance: INSULIN GLULISINE
     Indication: TYPE 1 DIABETES MELLITUS
     Dosage: UNK, Q8H, (6?7?6 IU, TID)
     Route: 058
     Dates: start: 201101, end: 201503
  10. INSULIN HUMAN [Suspect]
     Active Substance: INSULIN HUMAN
     Indication: TYPE 1 DIABETES MELLITUS
  11. INSULIN DETEMIR [Suspect]
     Active Substance: INSULIN DETEMIR
     Indication: LATENT AUTOIMMUNE DIABETES IN ADULTS
     Dosage: 8 INTERNATIONAL UNIT
     Route: 058
     Dates: start: 201101, end: 201705

REACTIONS (2)
  - Hyperglycaemia [Recovered/Resolved]
  - Diabetic metabolic decompensation [Recovered/Resolved]

NARRATIVE: CASE EVENT DATE: 201008
